FAERS Safety Report 23680019 (Version 1)
Quarter: 2024Q1

REPORT INFORMATION
  Report Type: Spontaneous
  Country: JP (occurrence: JP)
  Receive Date: 20240327
  Receipt Date: 20240327
  Transmission Date: 20240410
  Serious: Yes (Other)
  Sender: FDA-Public Use
  Company Number: JP-ONO-2024JP006505

PATIENT
  Age: 84 Year
  Sex: Male

DRUGS (1)
  1. OPDIVO [Suspect]
     Active Substance: NIVOLUMAB
     Indication: Gastric cancer
     Route: 041

REACTIONS (5)
  - Hypothyroidism [Recovered/Resolved]
  - Sinus bradycardia [Recovered/Resolved]
  - Sinus arrest [Recovered/Resolved]
  - Pruritus [Recovering/Resolving]
  - Dry skin [Recovering/Resolving]
